FAERS Safety Report 14950830 (Version 4)
Quarter: 2019Q2

REPORT INFORMATION
  Report Type: Spontaneous
  Country: US (occurrence: US)
  Receive Date: 20180530
  Receipt Date: 20190627
  Transmission Date: 20190711
  Serious: Yes (Hospitalization)
  Sender: FDA-Public Use
  Company Number: US-BIOGEN-2018BI00585019

PATIENT
  Age: 46 Year
  Sex: Female

DRUGS (6)
  1. TECFIDERA [Suspect]
     Active Substance: DIMETHYL FUMARATE
     Indication: MULTIPLE SCLEROSIS
     Dosage: MAINTENANCE DOSE
     Route: 050
     Dates: start: 20190403, end: 20190407
  2. TECFIDERA [Suspect]
     Active Substance: DIMETHYL FUMARATE
     Dosage: STARTING DOSE
     Route: 065
     Dates: start: 20180501, end: 20181101
  3. LYRICA [Suspect]
     Active Substance: PREGABALIN
     Indication: PRODUCT USED FOR UNKNOWN INDICATION
     Route: 065
  4. GABAPENTIN. [Concomitant]
     Active Substance: GABAPENTIN
     Indication: PRODUCT USED FOR UNKNOWN INDICATION
     Route: 065
  5. OMEPRAZOLE. [Concomitant]
     Active Substance: OMEPRAZOLE
     Indication: PRODUCT USED FOR UNKNOWN INDICATION
     Route: 065
  6. AVONEX [Suspect]
     Active Substance: INTERFERON BETA-1A
     Indication: MULTIPLE SCLEROSIS
     Route: 065

REACTIONS (19)
  - Intestinal polyp [Recovered/Resolved]
  - Dizziness [Recovered/Resolved]
  - Erythema [Unknown]
  - Gastric polyps [Recovered/Resolved]
  - Rotator cuff syndrome [Unknown]
  - Gastric mucosal hypertrophy [Unknown]
  - Arthritis [Not Recovered/Not Resolved]
  - Coordination abnormal [Recovered/Resolved]
  - Bronchitis [Not Recovered/Not Resolved]
  - Flushing [Recovered/Resolved]
  - Balance disorder [Recovered/Resolved]
  - Diarrhoea [Recovered/Resolved]
  - Feeling abnormal [Recovered/Resolved]
  - Drug hypersensitivity [Unknown]
  - Urticaria [Recovered/Resolved]
  - Cutaneous symptom [Recovered/Resolved]
  - Exostosis [Unknown]
  - Fall [Recovered/Resolved]
  - Night sweats [Unknown]

NARRATIVE: CASE EVENT DATE: 2018
